FAERS Safety Report 7210956-X (Version None)
Quarter: 2011Q1

REPORT INFORMATION
  Report Type: 
  Country: None (occurrence: None)
  Receive Date: 20110105
  Receipt Date: 20101229
  Transmission Date: 20110831
  Serious: Yes (Hospitalization)
  Sender: FDA-Public Use
  Company Number: A0902019A

PATIENT
  Age: 56 Year
  Sex: Female

DRUGS (6)
  1. ACCUPRIL [Concomitant]
  2. OPIOIDS [Concomitant]
  3. KLONOPIN [Concomitant]
  4. ZOLEDRONIC ACID [Concomitant]
  5. BEVACIZUMAB [Concomitant]
  6. VOTRIENT [Suspect]
     Dosage: 800MG PER DAY
     Route: 048
     Dates: start: 20100901

REACTIONS (1)
  - BLINDNESS [None]
